FAERS Safety Report 25033113 (Version 1)
Quarter: 2025Q1

REPORT INFORMATION
  Report Type: Spontaneous
  Country: US (occurrence: US)
  Receive Date: 20250303
  Receipt Date: 20250303
  Transmission Date: 20250408
  Serious: No
  Sender: NOVO NORDISK
  Company Number: US-NOVOPROD-1243469

PATIENT
  Age: 65 Year
  Sex: Female

DRUGS (2)
  1. SAXENDA [Suspect]
     Active Substance: LIRAGLUTIDE
     Indication: Glucose tolerance impaired
  2. SAXENDA [Suspect]
     Active Substance: LIRAGLUTIDE
     Indication: Weight control
     Route: 058
     Dates: start: 202311, end: 202401

REACTIONS (2)
  - Blood pressure increased [Unknown]
  - Lymphoedema [Unknown]

NARRATIVE: CASE EVENT DATE: 20240201
